FAERS Safety Report 19854685 (Version 7)
Quarter: 2023Q2

REPORT INFORMATION
  Report Type: Report from Study
  Country: CN (occurrence: CN)
  Receive Date: 20210920
  Receipt Date: 20230509
  Transmission Date: 20230721
  Serious: Yes (Hospitalization)
  Sender: FDA-Public Use
  Company Number: CN-ELI_LILLY_AND_COMPANY-CN202109001846

PATIENT
  Age: 58 Year
  Sex: Female
  Weight: 54.7 kg

DRUGS (50)
  1. PEMETREXED [Suspect]
     Active Substance: PEMETREXED
     Indication: Non-small cell lung cancer
     Dosage: 463.25 MG/M2, 1 IN 21 DAYS
     Route: 042
     Dates: start: 20210802
  2. CISPLATIN [Concomitant]
     Active Substance: CISPLATIN
     Indication: Non-small cell lung cancer
     Dosage: 67.82 MG/M2, 1 IN 21 DAYS
     Route: 042
     Dates: start: 20210802
  3. CARBOPLATIN [Concomitant]
     Active Substance: CARBOPLATIN
     Indication: Non-small cell lung cancer
     Dosage: 5 AUC, EVERY 21 DAYS
     Route: 065
  4. DAPAGLIFLOZIN [Concomitant]
     Active Substance: DAPAGLIFLOZIN
     Indication: Type 2 diabetes mellitus
     Dosage: UNK UNK, UNKNOWN
     Route: 065
     Dates: start: 202107
  5. VITAMINS NOS [Concomitant]
     Active Substance: VITAMINS
     Indication: Product used for unknown indication
     Dosage: UNK, UNKNOWN
     Dates: start: 20210802, end: 20210803
  6. VITAMINS NOS [Concomitant]
     Active Substance: VITAMINS
     Dosage: UNK
     Dates: start: 20210824, end: 20210826
  7. AMLODIPINE BESYLATE [Concomitant]
     Active Substance: AMLODIPINE BESYLATE
     Indication: Hypertension
     Dosage: UNK, UNKNOWN
     Route: 065
     Dates: start: 20210729
  8. NEOMYCIN SULFATE [Concomitant]
     Active Substance: NEOMYCIN SULFATE
     Indication: Product used for unknown indication
     Dosage: UNK, UNKNOWN
     Route: 065
     Dates: start: 20210812, end: 20210830
  9. FLUOCINONIDE;NEOMYCIN SULFATE [Concomitant]
     Indication: Product used for unknown indication
     Dosage: UNK, UNKNOWN
     Route: 065
     Dates: start: 20210812
  10. CYANOCOBALAMIN [Concomitant]
     Active Substance: CYANOCOBALAMIN
     Indication: Product used for unknown indication
     Dosage: UNK, UNKNOWN
     Route: 065
     Dates: start: 20210802, end: 20210803
  11. CYANOCOBALAMIN [Concomitant]
     Active Substance: CYANOCOBALAMIN
     Dosage: UNK
     Dates: start: 20210824, end: 20210826
  12. METOCLOPRAMIDE [Concomitant]
     Active Substance: METOCLOPRAMIDE
     Indication: Nausea
     Dosage: UNK, UNKNOWN
     Route: 065
     Dates: start: 20210804
  13. METOCLOPRAMIDE [Concomitant]
     Active Substance: METOCLOPRAMIDE
     Indication: Regurgitation
     Dosage: UNK, UNKNOWN
     Route: 065
     Dates: start: 20210805
  14. METOCLOPRAMIDE [Concomitant]
     Active Substance: METOCLOPRAMIDE
     Indication: Abdominal pain
  15. INSULIN ASPART [Concomitant]
     Active Substance: INSULIN ASPART
     Indication: Type 2 diabetes mellitus
     Dosage: UNK, UNKNOWN
     Route: 065
     Dates: start: 20210613, end: 20210728
  16. MAGNESIUM ISOGLYCYRRHIZINATE [Concomitant]
     Active Substance: MAGNESIUM ISOGLYCYRRHIZINATE
     Indication: Alanine aminotransferase increased
     Dosage: UNK
     Dates: start: 20210729, end: 20210805
  17. MAGNESIUM ISOGLYCYRRHIZINATE [Concomitant]
     Active Substance: MAGNESIUM ISOGLYCYRRHIZINATE
     Indication: Aspartate aminotransferase increased
  18. DEXAMETHASONE [Concomitant]
     Active Substance: DEXAMETHASONE
     Indication: Prophylaxis
     Dosage: UNK, UNKNOWN
     Route: 065
     Dates: start: 20210802, end: 20210803
  19. DEXAMETHASONE [Concomitant]
     Active Substance: DEXAMETHASONE
     Dosage: UNK, UNKNOWN
     Route: 065
     Dates: start: 20210823, end: 20210823
  20. DEXAMETHASONE [Concomitant]
     Active Substance: DEXAMETHASONE
     Dosage: UNK, UNKNOWN
     Route: 065
     Dates: start: 20210915, end: 20210917
  21. DEXAMETHASONE [Concomitant]
     Active Substance: DEXAMETHASONE
     Dosage: UNK, UNKNOWN
     Route: 065
     Dates: start: 20210829
  22. MANNITOL [Concomitant]
     Active Substance: MANNITOL
     Indication: Prophylaxis
     Dosage: UNK, UNKNOWN
     Route: 065
     Dates: start: 20210802, end: 20210802
  23. MANNITOL [Concomitant]
     Active Substance: MANNITOL
     Dosage: UNK, UNKNOWN
     Route: 065
     Dates: start: 20210824, end: 20210824
  24. APREPITANT [Concomitant]
     Active Substance: APREPITANT
     Indication: Nausea
     Dosage: UNK, UNKNOWN
     Route: 065
     Dates: start: 20210802, end: 20210803
  25. APREPITANT [Concomitant]
     Active Substance: APREPITANT
     Dosage: UNK, UNKNOWN
     Route: 065
     Dates: start: 20210802, end: 20210804
  26. INSULIN HUMAN [Concomitant]
     Active Substance: INSULIN HUMAN
     Indication: Type 2 diabetes mellitus
     Dosage: UNK, UNKNOWN
     Route: 065
     Dates: start: 20210804, end: 20210804
  27. INSULIN HUMAN [Concomitant]
     Active Substance: INSULIN HUMAN
     Dosage: UNK, UNKNOWN
     Route: 065
     Dates: start: 20210827, end: 20210827
  28. INSULIN HUMAN [Concomitant]
     Active Substance: INSULIN HUMAN
     Dosage: UNK, UNKNOWN
     Route: 065
     Dates: start: 20210829, end: 20210829
  29. OMEPRAZOLE SODIUM [Concomitant]
     Active Substance: OMEPRAZOLE SODIUM
     Indication: Product used for unknown indication
     Dosage: UNK, UNKNOWN
     Route: 065
     Dates: start: 20210804, end: 20210804
  30. OMEPRAZOLE SODIUM [Concomitant]
     Active Substance: OMEPRAZOLE SODIUM
     Dosage: UNK
     Dates: start: 20210805, end: 20210805
  31. VITAMIN B6 [Concomitant]
     Active Substance: PYRIDOXINE HYDROCHLORIDE
     Indication: Supplementation therapy
     Dosage: UNK, UNKNOWN
     Route: 065
     Dates: start: 20210802, end: 20210803
  32. VITAMIN B6 [Concomitant]
     Active Substance: PYRIDOXINE HYDROCHLORIDE
     Indication: Prophylaxis
     Dosage: UNK, UNKNOWN
     Route: 065
     Dates: start: 20210824, end: 20210826
  33. VITAMIN B6 [Concomitant]
     Active Substance: PYRIDOXINE HYDROCHLORIDE
     Dosage: UNK
     Route: 065
     Dates: start: 20210829, end: 20210829
  34. VITAMIN C [Concomitant]
     Active Substance: ASCORBIC ACID
     Indication: Supplementation therapy
     Dosage: UNK, UNKNOWN
     Route: 065
     Dates: start: 20210802, end: 20210803
  35. VITAMIN C [Concomitant]
     Active Substance: ASCORBIC ACID
     Indication: Prophylaxis
     Dosage: UNK, UNKNOWN
     Route: 065
     Dates: start: 20210824, end: 20210826
  36. VITAMIN C [Concomitant]
     Active Substance: ASCORBIC ACID
     Dosage: UNK, UNKNOWN
     Route: 065
     Dates: start: 20210829, end: 20210829
  37. PEGYLATED RECOMBINANT HUMAN GRANULOCYTE COLON [Concomitant]
     Indication: Product used for unknown indication
     Dosage: UNK, UNKNOWN
     Route: 065
     Dates: start: 20210809, end: 20210809
  38. PEGYLATED RECOMBINANT HUMAN GRANULOCYTE COLON [Concomitant]
     Dosage: UNK, UNKNOWN
     Route: 065
     Dates: start: 20210827, end: 20210827
  39. PEGYLATED RECOMBINANT HUMAN GRANULOCYTE COLON [Concomitant]
     Dosage: UNK, UNKNOWN
     Route: 065
     Dates: start: 20210829, end: 20210829
  40. PEGYLATED RECOMBINANT HUMAN GRANULOCYTE COLON [Concomitant]
     Dosage: UNK, UNKNOWN
     Route: 065
     Dates: start: 20210919
  41. POTASSIUM CHLORIDE [Concomitant]
     Active Substance: POTASSIUM CHLORIDE
     Indication: Prophylaxis
     Dosage: UNK, UNKNOWN
     Route: 065
     Dates: start: 20210827, end: 20210827
  42. LORATADINE [Concomitant]
     Active Substance: LORATADINE
     Indication: Hypersensitivity
     Dosage: UNK, UNKNOWN
     Route: 065
     Dates: start: 20210813, end: 20210813
  43. INSULIN GLARGINE [Concomitant]
     Active Substance: INSULIN GLARGINE
     Indication: Type 2 diabetes mellitus
     Dosage: UNK, UNKNOWN
     Route: 065
     Dates: start: 20210613, end: 20210627
  44. ACYCLOVIR [Concomitant]
     Active Substance: ACYCLOVIR
     Indication: Herpes zoster
     Dosage: UNK, UNKNOWN
     Route: 065
     Dates: start: 20210918
  45. HERBALS\DIAMMONIUM GLYCYRRHIZINATE [Concomitant]
     Active Substance: HERBALS\DIAMMONIUM GLYCYRRHIZINATE
     Indication: Product used for unknown indication
     Dosage: UNK, UNKNOWN
     Route: 065
     Dates: start: 20210805, end: 20210819
  46. HERBALS\DIAMMONIUM GLYCYRRHIZINATE [Concomitant]
     Active Substance: HERBALS\DIAMMONIUM GLYCYRRHIZINATE
     Dosage: UNK, UNKNOWN
     Route: 065
     Dates: start: 20210827, end: 20210827
  47. METHYLCOBALAMIN [Concomitant]
     Active Substance: METHYLCOBALAMIN
     Indication: Herpes zoster
     Dosage: UNK, UNKNOWN
     Route: 065
     Dates: start: 20210918
  48. VALACYCLOVIR HYDROCHLORIDE [Concomitant]
     Active Substance: VALACYCLOVIR HYDROCHLORIDE
     Indication: Herpes zoster
     Dosage: UNK, UNKNOWN
     Route: 065
     Dates: start: 20210918
  49. PHOSPHOLIPID [Concomitant]
     Active Substance: PHOSPHOLIPID
     Indication: Aspartate aminotransferase increased
     Dosage: UNK
     Dates: start: 20210729, end: 20210805
  50. PHOSPHOLIPID [Concomitant]
     Active Substance: PHOSPHOLIPID
     Indication: Alanine aminotransferase increased
     Dosage: UNK
     Dates: start: 20210729, end: 20210814

REACTIONS (4)
  - Abdominal pain [Recovered/Resolved]
  - Nausea [Recovered/Resolved]
  - Fatigue [Recovered/Resolved]
  - Regurgitation [Recovered/Resolved]

NARRATIVE: CASE EVENT DATE: 20210827
